FAERS Safety Report 11688864 (Version 2)
Quarter: 2015Q4

REPORT INFORMATION
  Report Type: Spontaneous
  Country: BR (occurrence: BR)
  Receive Date: 20151102
  Receipt Date: 20151217
  Transmission Date: 20160304
  Serious: Yes (Other)
  Sender: FDA-Public Use
  Company Number: BR-PFIZER INC-2015357470

PATIENT
  Age: 76 Year
  Sex: Female
  Weight: 75 kg

DRUGS (14)
  1. OLCADIL [Concomitant]
     Active Substance: CLOXAZOLAM
     Indication: NERVOUSNESS
     Dosage: STRENGTH 1 MG, UNK
     Dates: start: 2010
  2. SOMALGIN CARDIO [Concomitant]
     Active Substance: ASPIRIN\DIHYDROXYALUMINUM AMINOACETATE ANHYDROUS\MAGNESIUM CARBONATE
     Indication: ANTICOAGULANT THERAPY
     Dosage: STRENGTH 100 MG, UNK
     Dates: start: 2010
  3. NEUFIL [Concomitant]
     Indication: GASTROINTESTINAL DISORDER
     Dosage: UNK
  4. XALATAN [Suspect]
     Active Substance: LATANOPROST
     Indication: INTRAOCULAR PRESSURE INCREASED
     Dosage: ONE DROP IN EACH EYE AT NIGHT
     Route: 047
     Dates: start: 201509
  5. XALATAN [Suspect]
     Active Substance: LATANOPROST
     Dosage: UNK
  6. XALATAN [Suspect]
     Active Substance: LATANOPROST
     Dosage: UNK
  7. DIOVAN [Concomitant]
     Active Substance: VALSARTAN
     Indication: HYPERTENSION
     Dosage: 1 TABLET AND A HALF IN THE MORNING
  8. CRESTOR [Concomitant]
     Active Substance: ROSUVASTATIN CALCIUM
     Indication: CAROTID ARTERY OCCLUSION
     Dosage: STRENGTH 10 MG, UNK
     Dates: start: 2010
  9. HYABAK [Concomitant]
     Indication: DRY EYE
     Dosage: 1 DROP IN EACH EYE, IN THE MORNING AND AT LUNCH
     Route: 047
     Dates: start: 2012
  10. NEXIUM [Concomitant]
     Active Substance: ESOMEPRAZOLE MAGNESIUM
     Dosage: STRENGTH 20 MG, UNK
     Dates: start: 2010
  11. RITMONORM [Concomitant]
     Active Substance: PROPAFENONE HYDROCHLORIDE
     Dosage: HALF TABLET OF 300MG IN THE MORNING AND HALF AT NIGHT
     Dates: start: 2010
  12. XALATAN [Suspect]
     Active Substance: LATANOPROST
     Dosage: UNK
  13. DEPURA [Concomitant]
     Active Substance: CHOLECALCIFEROL
     Dosage: UNK
     Dates: start: 2012
  14. PURAN [Concomitant]
     Active Substance: LEVOTHYROXINE SODIUM
     Indication: HYPOTHYROIDISM
     Dosage: 1 TABLET OF 25MG, A DAY
     Dates: start: 2011

REACTIONS (3)
  - Foreign body sensation in eyes [Recovered/Resolved]
  - Visual field defect [Not Recovered/Not Resolved]
  - Ocular hyperaemia [Not Recovered/Not Resolved]
